FAERS Safety Report 7133204-8 (Version None)
Quarter: 2010Q4

REPORT INFORMATION
  Report Type: 
  Country: None (occurrence: None)
  Receive Date: 20101202
  Receipt Date: 20101125
  Transmission Date: 20110411
  Serious: Yes (Hospitalization)
  Sender: FDA-Public Use
  Company Number: FR-PFIZER INC-2010157574

PATIENT
  Age: 71 Year
  Sex: Female

DRUGS (2)
  1. TAHOR [Suspect]
     Dosage: UNK
     Route: 048
     Dates: end: 20101014
  2. LEVOTHYROXINE SODIUM [Concomitant]

REACTIONS (1)
  - INTERSTITIAL LUNG DISEASE [None]
